FAERS Safety Report 8285388-6 (Version None)
Quarter: 2012Q2

REPORT INFORMATION
  Report Type: 
  Country: None (occurrence: None)
  Receive Date: 20120413
  Receipt Date: 20111018
  Transmission Date: 20120825
  Serious: No
  Sender: FDA-Public Use
  Company Number: US-ASTRAZENECA-2011SE63460

PATIENT
  Age: 37 Year
  Sex: Female

DRUGS (1)
  1. NEXIUM [Suspect]
     Route: 048

REACTIONS (9)
  - EAR DISCOMFORT [None]
  - NASAL DISCOMFORT [None]
  - MALAISE [None]
  - ILL-DEFINED DISORDER [None]
  - DRUG DOSE OMISSION [None]
  - DYSPEPSIA [None]
  - THROAT IRRITATION [None]
  - CHEST PAIN [None]
  - FEELING HOT [None]
